FAERS Safety Report 9272402 (Version 2)
Quarter: 2013Q2

REPORT INFORMATION
  Report Type: Report from Study
  Country: US (occurrence: US)
  Receive Date: 20130506
  Receipt Date: 20130510
  Transmission Date: 20140414
  Serious: Yes (Hospitalization)
  Sender: FDA-Public Use
  Company Number: US-PFIZER INC-2013133083

PATIENT
  Age: 59 Year
  Sex: Female
  Weight: 67 kg

DRUGS (7)
  1. REVATIO [Suspect]
     Indication: PULMONARY ARTERIAL HYPERTENSION
     Dosage: 20 MG, UNK
     Route: 048
  2. LETAIRIS [Suspect]
     Indication: PULMONARY ARTERIAL HYPERTENSION
     Dosage: 5 MG, UNK
     Route: 048
  3. TREPROSTINIL DIETHANOLAMINE [Suspect]
     Indication: PULMONARY ARTERIAL HYPERTENSION
     Dosage: 10 MG (5 MG, 2 IN 1 D)
     Route: 048
     Dates: start: 20080902
  4. LEXAPRO [Concomitant]
     Indication: DEPRESSION
     Dosage: 10 MG, UNK
     Route: 048
  5. TYLENOL [Concomitant]
     Indication: HEADACHE
     Dosage: 500 MG, AS NEEDED
     Route: 048
  6. TYLENOL [Concomitant]
     Indication: PAIN
  7. DEXILANT [Concomitant]

REACTIONS (3)
  - Flushing [Recovered/Resolved]
  - Chest pain [Recovered/Resolved]
  - Palmar erythema [Recovered/Resolved]
